FAERS Safety Report 14225239 (Version 4)
Quarter: 2018Q2

REPORT INFORMATION
  Report Type: Spontaneous
  Country: IL (occurrence: IL)
  Receive Date: 20171127
  Receipt Date: 20180510
  Transmission Date: 20180711
  Serious: Yes (Death, Hospitalization, Other)
  Sender: FDA-Public Use
  Company Number: IL-009507513-1711ISR011048

PATIENT
  Age: 72 Year
  Sex: Male

DRUGS (3)
  1. KEYTRUDA [Suspect]
     Active Substance: PEMBROLIZUMAB
     Indication: COLON CANCER STAGE IV
  2. KEYTRUDA [Suspect]
     Active Substance: PEMBROLIZUMAB
     Indication: MICROSATELLITE INSTABILITY CANCER
  3. KEYTRUDA [Suspect]
     Active Substance: PEMBROLIZUMAB
     Indication: COLORECTAL CANCER METASTATIC
     Dosage: UNK
     Dates: start: 20171001, end: 20171113

REACTIONS (5)
  - Encephalopathy [Fatal]
  - Confusional state [Fatal]
  - Pyrexia [Fatal]
  - Malignant neoplasm progression [Unknown]
  - Product use in unapproved indication [Unknown]

NARRATIVE: CASE EVENT DATE: 2017
